FAERS Safety Report 13181506 (Version 4)
Quarter: 2017Q2

REPORT INFORMATION
  Report Type: Spontaneous
  Country: US (occurrence: US)
  Receive Date: 20170202
  Receipt Date: 20170613
  Transmission Date: 20170830
  Serious: Yes (Other)
  Sender: FDA-Public Use
  Company Number: US-CELGENEUS-USA-2017018540

PATIENT
  Age: 66 Year
  Sex: Male

DRUGS (2)
  1. OTEZLA [Suspect]
     Active Substance: APREMILAST
     Indication: PSORIASIS
     Dosage: 60 MILLIGRAM
     Route: 048
     Dates: start: 20161230
  2. OPDIVO [Concomitant]
     Active Substance: NIVOLUMAB
     Indication: HEPATIC CANCER
     Route: 065

REACTIONS (4)
  - Rash [Unknown]
  - Liver disorder [Unknown]
  - Malaise [Unknown]
  - Psoriasis [Unknown]

NARRATIVE: CASE EVENT DATE: 20161230
